FAERS Safety Report 6208108-5 (Version None)
Quarter: 2009Q2

REPORT INFORMATION
  Report Type: 
  Country: None (occurrence: None)
  Receive Date: 20090529
  Receipt Date: 20081211
  Transmission Date: 20091009
  Serious: Yes (Hospitalization)
  Sender: FDA-Public Use
  Company Number: A0760908A

PATIENT
  Age: 47 Year
  Sex: Male

DRUGS (5)
  1. ZIDOVUDINE [Suspect]
     Indication: HIV INFECTION
     Dates: start: 20080911, end: 20081031
  2. INTELENCE [Suspect]
     Indication: HIV INFECTION
     Dates: start: 20080911, end: 20081031
  3. TRUVADA [Suspect]
     Indication: HIV INFECTION
     Dates: start: 20080911, end: 20081031
  4. RALTEGRAVIR [Suspect]
     Indication: HIV INFECTION
     Dates: start: 20080911, end: 20081031
  5. METFORMIN HCL [Concomitant]

REACTIONS (1)
  - ANAEMIA [None]
